FAERS Safety Report 12327974 (Version 1)
Quarter: 2016Q2

REPORT INFORMATION
  Report Type: Spontaneous
  Country: FR (occurrence: FR)
  Receive Date: 20160503
  Receipt Date: 20160503
  Transmission Date: 20160815
  Serious: Yes (Hospitalization)
  Sender: FDA-Public Use
  Company Number: FR-ROCHE-1751484

PATIENT
  Age: 10 Year
  Sex: Male

DRUGS (1)
  1. NUTROPIN AQ [Suspect]
     Active Substance: SOMATROPIN
     Indication: GROWTH HORMONE DEFICIENCY
     Dosage: FORM STRENGTH: 10MG/2ML
     Route: 058
     Dates: start: 20060411

REACTIONS (1)
  - Adenoidectomy [Recovered/Resolved]

NARRATIVE: CASE EVENT DATE: 200703
